FAERS Safety Report 7250719-2 (Version None)
Quarter: 2011Q1

REPORT INFORMATION
  Report Type: 
  Country: None (occurrence: None)
  Receive Date: 20110128
  Receipt Date: 20110120
  Transmission Date: 20110831
  Serious: No
  Sender: FDA-Public Use
  Company Number: US-JNJFOC-20110105975

PATIENT
  Age: 60 Year
  Sex: Female

DRUGS (2)
  1. UNKNOWN MEDICATION [Concomitant]
     Route: 065
  2. INVEGA [Suspect]
     Indication: ILL-DEFINED DISORDER
     Dosage: APPROXIMATELY 2 MONTHS
     Route: 048

REACTIONS (2)
  - MOVEMENT DISORDER [None]
  - MUSCLE FATIGUE [None]
